FAERS Safety Report 7884964-X (Version None)
Quarter: 2011Q4

REPORT INFORMATION
  Report Type: 
  Country: None (occurrence: None)
  Receive Date: 20111102
  Receipt Date: 20111020
  Transmission Date: 20120403
  Serious: Yes (Death)
  Sender: FDA-Public Use
  Company Number: AT-PURDUE-DEU-2011-0007918

PATIENT
  Sex: Male

DRUGS (3)
  1. MORPHINE SULFATE [Suspect]
     Indication: PRODUCT USED FOR UNKNOWN INDICATION
     Route: 065
  2. ASPIRIN [Concomitant]
     Indication: PRODUCT USED FOR UNKNOWN INDICATION
  3. COLLARGOL AND OLYNTH [Concomitant]
     Indication: IMMUNE ENHANCEMENT THERAPY
     Dosage: UNK
     Dates: start: 19110101, end: 19110101

REACTIONS (2)
  - INTENTIONAL OVERDOSE [None]
  - COMA [None]
